FAERS Safety Report 5867844-0 (Version None)
Quarter: 2008Q3

REPORT INFORMATION
  Report Type: 
  Country: None (occurrence: None)
  Receive Date: 20080902
  Receipt Date: 20080822
  Transmission Date: 20090109
  Serious: Yes (Death)
  Sender: FDA-Public Use
  Company Number: DE-GENENTECH-266774

PATIENT
  Age: 10 Year
  Sex: Male

DRUGS (5)
  1. XOLAIR [Suspect]
     Indication: ASTHMA
     Dosage: 450 MG, 1/MONTH
     Dates: start: 20080501
  2. DECORTIN-H [Concomitant]
     Indication: ASTHMA
     Dosage: UNK
     Dates: end: 20080801
  3. FORADIL [Concomitant]
     Indication: ASTHMA
  4. BUDESONIDE [Concomitant]
     Indication: ASTHMA
  5. SULTANOL [Concomitant]
     Indication: ASTHMA

REACTIONS (1)
  - ADRENAL INSUFFICIENCY [None]
